FAERS Safety Report 10511364 (Version 1)
Quarter: 2014Q4

REPORT INFORMATION
  Report Type: Spontaneous
  Country: FR (occurrence: FR)
  Receive Date: 20141010
  Receipt Date: 20141010
  Transmission Date: 20150528
  Serious: Yes (Life-Threatening, Hospitalization)
  Sender: FDA-Public Use
  Company Number: FR-MYLANLABS-2014M1006674

PATIENT

DRUGS (2)
  1. MORPHINE [Suspect]
     Active Substance: MORPHINE
     Indication: SUICIDE ATTEMPT
     Dosage: 200MG X 5 AMPOULE
     Route: 065
  2. MORPHINE [Suspect]
     Active Substance: MORPHINE
     Indication: OFF LABEL USE

REACTIONS (9)
  - Altered state of consciousness [Recovered/Resolved]
  - Suicide attempt [Unknown]
  - Memory impairment [Recovering/Resolving]
  - Miosis [Unknown]
  - Intentional overdose [None]
  - Toxicity to various agents [Unknown]
  - Overdose [Unknown]
  - Hypoxia [Recovered/Resolved]
  - Respiratory rate decreased [Recovered/Resolved]
